FAERS Safety Report 6876838-8 (Version None)
Quarter: 2010Q3

REPORT INFORMATION
  Report Type: 
  Country: None (occurrence: None)
  Receive Date: 20100727
  Receipt Date: 20100716
  Transmission Date: 20110219
  Serious: Yes (Hospitalization)
  Sender: FDA-Public Use
  Company Number: US-ROCHE-716232

PATIENT
  Age: 88 Year
  Sex: Male
  Weight: 56.8 kg

DRUGS (2)
  1. BONIVA [Suspect]
     Indication: OSTEOPOROSIS
     Route: 048
     Dates: start: 20100701
  2. CALCIUM [Concomitant]

REACTIONS (4)
  - DYSPHAGIA [None]
  - MUSCULOSKELETAL CHEST PAIN [None]
  - VOMITING [None]
  - WEIGHT DECREASED [None]
